FAERS Safety Report 25519712 (Version 3)
Quarter: 2025Q3

REPORT INFORMATION
  Report Type: Report from Study
  Country: US (occurrence: US)
  Receive Date: 20250704
  Receipt Date: 20250827
  Transmission Date: 20251020
  Serious: Yes (Other)
  Sender: TAKEDA
  Company Number: US-TAKEDA-2022TUS003923

PATIENT
  Sex: Female
  Weight: 99 kg

DRUGS (37)
  1. HUMAN IMMUNOGLOBULIN G [Suspect]
     Active Substance: HUMAN IMMUNOGLOBULIN G
     Indication: Hypogammaglobulinaemia
     Dosage: 7 GRAM, 1/WEEK
  2. HUMAN IMMUNOGLOBULIN G [Suspect]
     Active Substance: HUMAN IMMUNOGLOBULIN G
     Indication: Immunodeficiency common variable
     Dosage: 7 GRAM, 3/MONTH
  3. HUMAN IMMUNOGLOBULIN G [Suspect]
     Active Substance: HUMAN IMMUNOGLOBULIN G
  4. CUTAQUIG [Suspect]
     Active Substance: HUMAN IMMUNOGLOBULIN G
     Indication: Product used for unknown indication
  5. GAMUNEX-C [Suspect]
     Active Substance: HUMAN IMMUNOGLOBULIN G
     Indication: Product used for unknown indication
  6. HIZENTRA [Suspect]
     Active Substance: HUMAN IMMUNOGLOBULIN G
     Indication: Product used for unknown indication
  7. EPINEPHRINE [Concomitant]
     Active Substance: EPINEPHRINE
  8. LITHIUM CARBONATE [Concomitant]
     Active Substance: LITHIUM CARBONATE
  9. Lyta [Concomitant]
  10. NITAZOXANIDE [Concomitant]
     Active Substance: NITAZOXANIDE
  11. VITAMIN E [Concomitant]
     Active Substance: .ALPHA.-TOCOPHEROL
  12. FLONASE ALLERGY RELIEF [Concomitant]
     Active Substance: FLUTICASONE PROPIONATE
  13. Lmx [Concomitant]
  14. SYNTHROID [Concomitant]
     Active Substance: LEVOTHYROXINE SODIUM
  15. SAPHRIS [Concomitant]
     Active Substance: ASENAPINE MALEATE
  16. CLONIDINE HYDROCHLORIDE [Concomitant]
     Active Substance: CLONIDINE HYDROCHLORIDE
  17. FLUVOXAMINE MALEATE [Concomitant]
     Active Substance: FLUVOXAMINE MALEATE
  18. IBUPROFEN [Concomitant]
     Active Substance: IBUPROFEN
  19. ACETAMINOPHEN [Concomitant]
     Active Substance: ACETAMINOPHEN
  20. DIPHENHYDRAMINE HYDROCHLORIDE [Concomitant]
     Active Substance: DIPHENHYDRAMINE HYDROCHLORIDE
  21. DIPHENHYDRAMINE [Concomitant]
     Active Substance: DIPHENHYDRAMINE
  22. FLONASE [Concomitant]
     Active Substance: FLUTICASONE PROPIONATE
  23. AMITRIPTYLINE [Concomitant]
     Active Substance: AMITRIPTYLINE
  24. LOXAPINE [Concomitant]
     Active Substance: LOXAPINE
  25. VITAMIN C [Concomitant]
     Active Substance: ASCORBIC ACID
  26. VITAMIN D3 [Concomitant]
     Active Substance: CHOLECALCIFEROL
  27. OLOPATADINE [Concomitant]
     Active Substance: OLOPATADINE
  28. CLONIDINE [Concomitant]
     Active Substance: CLONIDINE
  29. AZELASTINE [Concomitant]
     Active Substance: AZELASTINE
  30. TIAGABINE [Concomitant]
     Active Substance: TIAGABINE
  31. CAPLYTA [Concomitant]
     Active Substance: LUMATEPERONE
  32. CELECOXIB [Concomitant]
     Active Substance: CELECOXIB
  33. FLUCONAZOLE [Concomitant]
     Active Substance: FLUCONAZOLE
  34. FLUVOXAMINE [Concomitant]
     Active Substance: FLUVOXAMINE
  35. AMITRIPTYLINE HYDROCHLORIDE [Concomitant]
     Active Substance: AMITRIPTYLINE HYDROCHLORIDE
  36. IMIPRAMINE HYDROCHLORIDE [Concomitant]
     Active Substance: IMIPRAMINE HYDROCHLORIDE
  37. TIAGABINE HYDROCHLORIDE [Concomitant]
     Active Substance: TIAGABINE HYDROCHLORIDE

REACTIONS (13)
  - Psychotic disorder [Unknown]
  - Affective disorder [Unknown]
  - Drug intolerance [Unknown]
  - Infection [Not Recovered/Not Resolved]
  - White blood cell count increased [Unknown]
  - Oral herpes [Unknown]
  - Viral infection [Unknown]
  - Dysbiosis [Unknown]
  - Weight decreased [Unknown]
  - Product dose omission issue [Unknown]
  - Sinusitis [Not Recovered/Not Resolved]
  - Feeling abnormal [Recovered/Resolved]
  - Headache [Unknown]
